FAERS Safety Report 7152947-3 (Version None)
Quarter: 2010Q4

REPORT INFORMATION
  Report Type: 
  Country: None (occurrence: None)
  Receive Date: 20101209
  Receipt Date: 20101209
  Transmission Date: 20110411
  Serious: Yes (Life-Threatening)
  Sender: FDA-Public Use
  Company Number: None

PATIENT
  Age: 33 Year
  Sex: Female
  Weight: 61.2356 kg

DRUGS (1)
  1. BUPROPION XL 150MG MYLAN [Suspect]
     Indication: DEPRESSION
     Dosage: 150MG 1 X PER DAY PO
     Route: 048
     Dates: start: 20101029, end: 20101208

REACTIONS (1)
  - OROPHARYNGEAL PAIN [None]
